FAERS Safety Report 21932784 (Version 1)
Quarter: 2023Q1

REPORT INFORMATION
  Report Type: Spontaneous
  Country: HU (occurrence: None)
  Receive Date: 20230131
  Receipt Date: 20230131
  Transmission Date: 20230417
  Serious: Yes (Other)
  Sender: FDA-Public Use
  Company Number: HU-PFIZER INC-2020115844

PATIENT
  Age: 35 Year
  Sex: Female
  Weight: 53 kg

DRUGS (7)
  1. EUTHYROX [Suspect]
     Active Substance: LEVOTHYROXINE SODIUM
     Indication: Hypothyroidism
     Dosage: 50 UG, DAILY (1 TABLET) CONTINOUS SINCE SPRING OF 2010
     Dates: start: 201003
  2. NADROPARIN CALCIUM [Suspect]
     Active Substance: NADROPARIN CALCIUM
     Indication: Factor V Leiden mutation
     Dosage: 0.4 ML, 1X/DAY
     Dates: start: 20190712
  3. CIPRALEX [Suspect]
     Active Substance: ESCITALOPRAM OXALATE
     Indication: Obsessive-compulsive disorder
     Dosage: 20 MG, DAILY (1 TBL)  (DRUG TAKEN BY THE FATHER)
     Dates: start: 20120312
  4. CIPRALEX [Suspect]
     Active Substance: ESCITALOPRAM OXALATE
     Dosage: 10 MILLIGRAM, IN THE MORNING, PRODUCT TAKEN BY FATHER
     Dates: start: 20120312
  5. XALATAN [Suspect]
     Active Substance: LATANOPROST
     Indication: Glaucoma
     Dosage: 1-1 DROP, DAILY (DRUG TAKEN BY THE FATHER)
     Dates: start: 20180424
  6. LIPIDIL [Suspect]
     Active Substance: FENOFIBRATE
     Indication: Product used for unknown indication
     Dosage: 267 MG, UNK  (DRUG TAKEN BY THE FATHER)
     Dates: start: 20181213
  7. MONTELUKAST [Suspect]
     Active Substance: MONTELUKAST SODIUM
     Indication: Product used for unknown indication
     Dosage: 10 MG, UNK  (DRUG TAKEN BY THE FATHER)
     Dates: start: 20190401

REACTIONS (1)
  - Abortion spontaneous [Recovered/Resolved]

NARRATIVE: CASE EVENT DATE: 20190101
